FAERS Safety Report 5592868-0 (Version None)
Quarter: 2008Q1

REPORT INFORMATION
  Report Type: 
  Country: None (occurrence: None)
  Receive Date: 20080116
  Receipt Date: 20080108
  Transmission Date: 20080703
  Serious: Yes (Other)
  Sender: FDA-Public Use
  Company Number: GB-JNJFOC-20080102205

PATIENT
  Sex: Male
  Weight: 82 kg

DRUGS (6)
  1. REMICADE [Suspect]
     Indication: PSORIATIC ARTHROPATHY
     Route: 042
  2. METHOTREXATE [Concomitant]
  3. DICLOFENAC [Concomitant]
  4. FOLIC ACID [Concomitant]
  5. METOCLOPRAMIDE [Concomitant]
  6. SALAZOPYRIN [Concomitant]

REACTIONS (1)
  - CORONARY ARTERY DISEASE [None]
